FAERS Safety Report 10351633 (Version 1)
Quarter: 2014Q3

REPORT INFORMATION
  Report Type: Report from Study
  Country: DE (occurrence: DE)
  Receive Date: 20140730
  Receipt Date: 20140730
  Transmission Date: 20150326
  Serious: Yes (Other)
  Sender: FDA-Public Use
  Company Number: PHHY2014DE091798

PATIENT
  Sex: Female
  Weight: 80 kg

DRUGS (11)
  1. ULTIBRO BREEZHALER [Suspect]
     Active Substance: GLYCOPYRRONIUM\INDACATEROL
     Indication: CHRONIC OBSTRUCTIVE PULMONARY DISEASE
     Dosage: 1 DF, QD
     Route: 055
     Dates: start: 20140117
  2. BERODUAL N [Concomitant]
     Active Substance: FENOTEROL HYDROBROMIDE\IPRATROPIUM BROMIDE
     Dates: start: 20121220
  3. DIGITOXIN ^AWD^ [Concomitant]
  4. ENA HENNIG [Concomitant]
  5. CARBIMAZOL HENNING [Concomitant]
     Dosage: 10 MG, UNK
  6. PROCORALAN [Concomitant]
     Active Substance: IVABRADINE
  7. PANTOZOL [Concomitant]
     Active Substance: PANTOPRAZOLE SODIUM
     Dosage: 20 MG, UNK
  8. XARELTO [Concomitant]
     Active Substance: RIVAROXABAN
     Dosage: 20 MG, UNK
  9. TRIAMTEREN HCT AL [Concomitant]
  10. NO TREATMENT RECEIVED [Suspect]
     Active Substance: UNSPECIFIED INGREDIENT
  11. DAXAS [Concomitant]
     Active Substance: ROFLUMILAST
     Dosage: 500 UG, QD
     Dates: start: 20100924

REACTIONS (4)
  - Peripheral swelling [Recovered/Resolved]
  - Pruritus generalised [Recovered/Resolved]
  - Erythema [Recovered/Resolved]
  - Dermatitis allergic [Recovered/Resolved]

NARRATIVE: CASE EVENT DATE: 20140419
